FAERS Safety Report 10229653 (Version 1)
Quarter: 2014Q2

REPORT INFORMATION
  Report Type: Spontaneous
  Country: DK (occurrence: DK)
  Receive Date: 20140611
  Receipt Date: 20140611
  Transmission Date: 20141212
  Serious: Yes (Hospitalization)
  Sender: FDA-Public Use
  Company Number: DK-JNJFOC-20140602441

PATIENT
  Age: 75 Year
  Sex: Female

DRUGS (14)
  1. XARELTO [Suspect]
     Indication: EMBOLISM VENOUS
     Route: 048
     Dates: start: 20130913, end: 20140307
  2. XARELTO [Suspect]
     Indication: DEEP VEIN THROMBOSIS
     Route: 048
     Dates: start: 20130913, end: 20140307
  3. SIMVASTATIN [Concomitant]
     Indication: HYPERCHOLESTEROLAEMIA
     Route: 065
  4. CITALOPRAM [Concomitant]
     Indication: DEPRESSION
     Route: 065
  5. MOVICOL [Concomitant]
     Indication: CONSTIPATION
     Route: 065
  6. FUROSEMIDE [Concomitant]
     Indication: DIURETIC THERAPY
     Route: 065
  7. RISPERIDONE [Concomitant]
     Indication: OEDEMA
     Route: 065
  8. IMOCLONE [Concomitant]
     Indication: INSOMNIA
     Route: 065
  9. JERN C [Concomitant]
     Indication: VITAMIN SUPPLEMENTATION
     Route: 065
  10. MULTIVITAMINS [Concomitant]
     Indication: VITAMIN SUPPLEMENTATION
     Route: 065
  11. PANTOPRAZOLE [Concomitant]
     Indication: GASTRIC PH DECREASED
     Route: 065
  12. VITAMIN B NOS [Concomitant]
     Indication: VITAMIN SUPPLEMENTATION
     Route: 065
  13. LAKTULOSE [Concomitant]
     Indication: CONSTIPATION
     Route: 065
  14. FOLIC ACID [Concomitant]
     Indication: VITAMIN SUPPLEMENTATION
     Route: 065

REACTIONS (1)
  - Anaemia [Unknown]
